FAERS Safety Report 9160252 (Version 1)
Quarter: 2013Q1

REPORT INFORMATION
  Report Type: Spontaneous
  Country: RU (occurrence: RU)
  Receive Date: 20130313
  Receipt Date: 20130313
  Transmission Date: 20140127
  Serious: Yes (Hospitalization)
  Sender: FDA-Public Use
  Company Number: RU-ROCHE-1200993

PATIENT
  Age: 73 Year
  Sex: Male

DRUGS (5)
  1. MABTHERA [Suspect]
     Indication: B-CELL LYMPHOMA
     Route: 065
     Dates: end: 201211
  2. CYCLOPHOSPHANE [Concomitant]
     Route: 065
     Dates: end: 201211
  3. DOXORUBICIN [Concomitant]
     Route: 065
     Dates: end: 201211
  4. VINCRISTINE [Concomitant]
     Route: 065
     Dates: end: 201211
  5. PREDNISOLONE [Concomitant]
     Route: 065
     Dates: end: 201211

REACTIONS (1)
  - Hepatitis fulminant [Not Recovered/Not Resolved]
